FAERS Safety Report 7990878-7 (Version None)
Quarter: 2011Q4

REPORT INFORMATION
  Report Type: 
  Country: None (occurrence: None)
  Receive Date: 20111219
  Receipt Date: 20111207
  Transmission Date: 20120403
  Serious: Yes (Other)
  Sender: FDA-Public Use
  Company Number: CA-ROCHE-1017475

PATIENT
  Sex: Male

DRUGS (1)
  1. XOLAIR [Suspect]
     Indication: ASTHMA
     Route: 058
     Dates: start: 20100127

REACTIONS (4)
  - NASOPHARYNGITIS [None]
  - COUGH [None]
  - PRODUCTIVE COUGH [None]
  - PNEUMONIA [None]
